FAERS Safety Report 6140062-7 (Version None)
Quarter: 2009Q2

REPORT INFORMATION
  Report Type: 
  Country: None (occurrence: None)
  Receive Date: 20090401
  Receipt Date: 20090326
  Transmission Date: 20091009
  Serious: Yes (Hospitalization)
  Sender: FDA-Public Use
  Company Number: PHHY2009CA11783

PATIENT
  Sex: Female

DRUGS (1)
  1. ACLASTA [Suspect]

REACTIONS (7)
  - ARTHRALGIA [None]
  - DRUG ADMINISTRATION ERROR [None]
  - GLOMERULAR FILTRATION RATE DECREASED [None]
  - INFLUENZA LIKE ILLNESS [None]
  - LOSS OF CONSCIOUSNESS [None]
  - MYALGIA [None]
  - RENAL FAILURE [None]
